FAERS Safety Report 23624196 (Version 1)
Quarter: 2024Q1

REPORT INFORMATION
  Report Type: Report from Study
  Country: US (occurrence: US)
  Receive Date: 20240312
  Receipt Date: 20240312
  Transmission Date: 20240410
  Serious: No
  Sender: FDA-Public Use
  Company Number: US-ROCHE-3506457

PATIENT
  Age: 77 Year
  Sex: Female

DRUGS (1)
  1. GAVRETO [Suspect]
     Active Substance: PRALSETINIB
     Indication: Thyroid cancer
     Dosage: TAKE 2 CAPSULE(S) BY MOUTH (200MG) DAILY TAKE ON AN EMPTY STOMACH, AT LEAST 1 HOUR BEFORE OR 2 HOURS
     Route: 048
     Dates: start: 2021

REACTIONS (1)
  - Carpal tunnel syndrome [Not Recovered/Not Resolved]

NARRATIVE: CASE EVENT DATE: 20230701
